FAERS Safety Report 14467298 (Version 1)
Quarter: 2018Q1

REPORT INFORMATION
  Report Type: Spontaneous
  Country: US (occurrence: US)
  Receive Date: 20180131
  Receipt Date: 20180131
  Transmission Date: 20180509
  Serious: Yes (Hospitalization)
  Sender: FDA-Public Use
  Company Number: US-LPDUSPRD-20180085

PATIENT
  Age: 59 Year
  Sex: Male

DRUGS (4)
  1. DEXMEDETOMIDINE HYDROCHLORIDE INJECTION (0517-0995-25) [Suspect]
     Active Substance: DEXMEDETOMIDINE HYDROCHLORIDE
     Dosage: UNKNOWN
     Route: 065
  2. HIGH-PROTEIN TUBE FEEDS [Concomitant]
     Dosage: UNKNOWN
     Route: 050
  3. FENTANYL. [Concomitant]
     Active Substance: FENTANYL
     Dosage: UNKNOWN
     Route: 065
  4. CARBIDOPA-LEVODOPA [Concomitant]
     Active Substance: CARBIDOPA\LEVODOPA
     Dosage: UNKNOWN
     Route: 065

REACTIONS (1)
  - Hyperthermia [Recovered/Resolved]
